FAERS Safety Report 25908168 (Version 1)
Quarter: 2025Q4

REPORT INFORMATION
  Report Type: Spontaneous
  Country: CN (occurrence: CN)
  Receive Date: 20251010
  Receipt Date: 20251010
  Transmission Date: 20260117
  Serious: Yes (Other)
  Sender: PFIZER
  Company Number: CN-PFIZER INC-202500200145

PATIENT
  Age: 60 Year
  Sex: Male

DRUGS (3)
  1. BRENTUXIMAB VEDOTIN [Suspect]
     Active Substance: BRENTUXIMAB VEDOTIN
     Indication: Neoplasm malignant
     Dosage: 92.4 MG, 1X/DAY
     Route: 041
     Dates: start: 20250822, end: 20250822
  2. EPIRUBICIN HYDROCHLORIDE [Suspect]
     Active Substance: EPIRUBICIN HYDROCHLORIDE
     Indication: Neoplasm malignant
     Dosage: 67 MG, 1X/DAY
     Route: 041
     Dates: start: 20250822, end: 20250822
  3. VINDESINE SULFATE [Suspect]
     Active Substance: VINDESINE SULFATE
     Indication: Neoplasm malignant
     Dosage: 4 MG, 1X/DAY
     Route: 041
     Dates: start: 20250822, end: 20250822

REACTIONS (2)
  - Myelosuppression [Unknown]
  - Lipids increased [Unknown]

NARRATIVE: CASE EVENT DATE: 20250101
